APPROVED DRUG PRODUCT: NUZYRA
Active Ingredient: OMADACYCLINE TOSYLATE
Strength: EQ 150MG BASE
Dosage Form/Route: TABLET;ORAL
Application: N209816 | Product #001
Applicant: PARATEK PHARMACEUTICALS INC
Approved: Oct 2, 2018 | RLD: Yes | RS: Yes | Type: RX

PATENTS:
Patent 10111890 | Expires: Aug 3, 2037
Patent 9724358 | Expires: Mar 5, 2029
Patent 10383884 | Expires: Oct 31, 2037
Patent 10124014 | Expires: Mar 5, 2029
Patent 10835542 | Expires: Oct 31, 2037
Patent 9265740 | Expires: Oct 24, 2030
Patent 8383610 | Expires: Sep 23, 2030
Patent 9314475 | Expires: Mar 18, 2031

EXCLUSIVITY:
Code: NCE | Date: Oct 2, 2023
Code: GAIN | Date: Oct 2, 2028